FAERS Safety Report 14988754 (Version 3)
Quarter: 2018Q3

REPORT INFORMATION
  Report Type: Report from Study
  Country: None (occurrence: HU)
  Receive Date: 20180608
  Receipt Date: 20180706
  Transmission Date: 20181010
  Serious: Yes (Death, Life-Threatening)
  Sender: FDA-Public Use
  Company Number: HU-ABBVIE-18P-076-2377999-00

PATIENT
  Age: 69 Year
  Sex: Female
  Weight: 78 kg

DRUGS (14)
  1. DUODOPA [Suspect]
     Active Substance: CARBIDOPA\LEVODOPA
     Indication: PARKINSON^S DISEASE
     Dosage: TITRATION: DOSING AT END OF TITRATION: MD: 10 ML, CD: 2.1 ML/H, ED: 1 ML, 1X/D, 16 HR
     Route: 050
     Dates: start: 20170725, end: 20170728
  2. LANSOPRAZOL [Concomitant]
     Active Substance: LANSOPRAZOLE
     Indication: GASTROOESOPHAGEAL REFLUX DISEASE
     Route: 048
     Dates: start: 2010, end: 20180424
  3. LETROVENA [Concomitant]
     Indication: BREAST NEOPLASM
     Route: 048
     Dates: start: 2013, end: 20180424
  4. CHINOTAL [Concomitant]
     Active Substance: PENTOXIFYLLINE
     Indication: VARICOSE VEIN
     Route: 048
     Dates: start: 1974, end: 20180424
  5. MEMORIL [Concomitant]
     Indication: ARTERIOSCLEROSIS
     Route: 048
     Dates: start: 1974, end: 20180424
  6. FRONTIN [Concomitant]
     Active Substance: ALPRAZOLAM
     Indication: ANXIETY
     Route: 048
     Dates: start: 2013
  7. ACETYLSALICYLIC ACID [Concomitant]
     Active Substance: ASPIRIN
     Indication: PROPHYLAXIS
     Route: 048
     Dates: start: 2007, end: 20180424
  8. DUODOPA [Suspect]
     Active Substance: CARBIDOPA\LEVODOPA
     Route: 050
     Dates: start: 20171025
  9. MEMORIL [Concomitant]
     Indication: MEMORY IMPAIRMENT
  10. DUODOPA [Suspect]
     Active Substance: CARBIDOPA\LEVODOPA
     Dosage: MD: 10 ML, CD: 2.1 ML/H, ED: 1 ML, 4X/D, 16 HR
     Route: 050
     Dates: start: 20180110, end: 20180424
  11. PROPRANOLOL [Concomitant]
     Active Substance: PROPRANOLOL HYDROCHLORIDE
     Indication: ESSENTIAL TREMOR
     Dosage: 1?1?1/2?1/2
     Route: 048
     Dates: start: 2013, end: 20180424
  12. KETILEPT [Concomitant]
     Indication: PARKINSON^S DISEASE
     Route: 048
     Dates: start: 201709
  13. CHINOTAL [Concomitant]
     Active Substance: PENTOXIFYLLINE
     Indication: CEREBRAL VASOCONSTRICTION
  14. PROPRANOLOL [Concomitant]
     Active Substance: PROPRANOLOL HYDROCHLORIDE
     Indication: HYPERTENSION

REACTIONS (2)
  - Malaise [Fatal]
  - Cerebral infarction [Fatal]

NARRATIVE: CASE EVENT DATE: 20180424
